FAERS Safety Report 15562368 (Version 7)
Quarter: 2019Q1

REPORT INFORMATION
  Report Type: Spontaneous
  Country: US (occurrence: US)
  Receive Date: 20181029
  Receipt Date: 20190211
  Transmission Date: 20190417
  Serious: Yes (Hospitalization, Other)
  Sender: FDA-Public Use
  Company Number: US-ALEXION-A201814036

PATIENT
  Sex: Male

DRUGS (3)
  1. SOLIRIS [Suspect]
     Active Substance: ECULIZUMAB
     Indication: PRODUCT USED FOR UNKNOWN INDICATION
     Dosage: UNK
     Route: 065
  2. SOLIRIS [Suspect]
     Active Substance: ECULIZUMAB
     Dosage: UNK
     Route: 065
  3. PREDNISONE. [Concomitant]
     Active Substance: PREDNISONE
     Indication: PRODUCT USED FOR UNKNOWN INDICATION
     Dosage: 30 MG, QD
     Route: 065

REACTIONS (10)
  - Blood creatinine increased [Unknown]
  - Decreased appetite [Unknown]
  - Urine output decreased [Unknown]
  - Pollakiuria [Unknown]
  - Sepsis [Unknown]
  - Dysuria [Unknown]
  - Urinary tract infection [Recovered/Resolved]
  - Calculus prostatic [Recovered/Resolved]
  - Renal injury [Unknown]
  - Asthenia [Unknown]
